FAERS Safety Report 22172756 (Version 1)
Quarter: 2023Q2

REPORT INFORMATION
  Report Type: Spontaneous
  Country: US (occurrence: None)
  Receive Date: 20230403
  Receipt Date: 20230403
  Transmission Date: 20230721
  Serious: No
  Sender: FDA-Public Use
  Company Number: None

PATIENT
  Age: 74 Year
  Sex: Male
  Weight: 66.6 kg

DRUGS (2)
  1. DULOXETINE [Suspect]
     Active Substance: DULOXETINE
     Indication: Pain in extremity
     Dosage: OTHER QUANTITY : 1 CAPSULE(S);?FREQUENCY : DAILY;?
     Route: 048
     Dates: start: 20230320, end: 20230322
  2. DULOXETINE [Suspect]
     Active Substance: DULOXETINE
     Indication: Intervertebral disc degeneration

REACTIONS (3)
  - Hangover [None]
  - Loss of libido [None]
  - Drug ineffective [None]

NARRATIVE: CASE EVENT DATE: 20230321
